FAERS Safety Report 9153879 (Version 1)
Quarter: 2013Q1

REPORT INFORMATION
  Report Type: Spontaneous
  Country: US (occurrence: None)
  Receive Date: 20130306
  Receipt Date: 20130306
  Transmission Date: 20140127
  Serious: Yes (Hospitalization)
  Sender: FDA-Public Use
  Company Number: None

PATIENT
  Sex: Male
  Weight: 106.2 kg

DRUGS (2)
  1. METHOTREXATE [Suspect]
  2. VINCRISTINE SULFATE [Suspect]

REACTIONS (5)
  - Paraplegia [None]
  - Aspergillus infection [None]
  - Acute respiratory failure [None]
  - Hyperbilirubinaemia [None]
  - Febrile neutropenia [None]
